FAERS Safety Report 7693979-6 (Version None)
Quarter: 2011Q3

REPORT INFORMATION
  Report Type: 
  Country: None (occurrence: None)
  Receive Date: 20110819
  Receipt Date: 20110817
  Transmission Date: 20111222
  Serious: Yes (Other)
  Sender: FDA-Public Use
  Company Number: US-SANOFI-AVENTIS-2011SA048937

PATIENT
  Age: 68 Year
  Sex: Female

DRUGS (6)
  1. LAMOTRIGINE [Concomitant]
  2. CARDIZEM [Concomitant]
  3. ZETIA [Concomitant]
  4. MULTAQ [Suspect]
     Route: 048
  5. SYNTHROID [Concomitant]
  6. COUMADIN [Concomitant]

REACTIONS (9)
  - ATRIAL FIBRILLATION [None]
  - BLOOD ALKALINE PHOSPHATASE INCREASED [None]
  - ALANINE AMINOTRANSFERASE INCREASED [None]
  - VOMITING [None]
  - HEPATITIS [None]
  - NAUSEA [None]
  - BLOOD BILIRUBIN INCREASED [None]
  - ABDOMINAL PAIN UPPER [None]
  - ASPARTATE AMINOTRANSFERASE INCREASED [None]
